FAERS Safety Report 8277915-X (Version None)
Quarter: 2012Q2

REPORT INFORMATION
  Report Type: 
  Country: None (occurrence: None)
  Receive Date: 20120412
  Receipt Date: 20120402
  Transmission Date: 20120825
  Serious: Yes (Hospitalization, Other)
  Sender: FDA-Public Use
  Company Number: US-ELI_LILLY_AND_COMPANY-US201204000699

PATIENT
  Sex: Female

DRUGS (14)
  1. CELEXA [Concomitant]
     Dosage: 20 MG, QD
  2. MIRALAX [Concomitant]
     Indication: CONSTIPATION
     Dosage: 1 MG, PRN
  3. VITAMIN B-12 [Concomitant]
     Dosage: UNK, QD
  4. PROTONIX [Concomitant]
     Dosage: 40 MG, BID
  5. SINGULAIR [Concomitant]
     Dosage: UNK, QD
  6. NORFLEX                            /00018303/ [Concomitant]
     Indication: MUSCLE SPASMS
     Dosage: UNK, PRN
  7. CITRICAL [Concomitant]
     Dosage: UNK, BID
  8. FUROSEMIDE [Concomitant]
     Dosage: 40 MG, QD
  9. ANALGESICS [Concomitant]
     Route: 058
  10. ASPIRIN [Concomitant]
     Dosage: 81 MG, QD
  11. VITAMIN D [Concomitant]
     Dosage: UNK, QD
  12. ZOFRAN [Concomitant]
     Indication: NAUSEA
     Dosage: UNK, PRN
  13. FORTEO [Suspect]
     Indication: OSTEOPOROSIS
     Dosage: 20 UG, QD
     Dates: start: 20101101, end: 20120101
  14. LEVOTHYROXINE SODIUM [Concomitant]
     Dosage: 0.025 MG, QD

REACTIONS (10)
  - TRANSFUSION [None]
  - WEIGHT DECREASED [None]
  - VISUAL IMPAIRMENT [None]
  - OEDEMA PERIPHERAL [None]
  - VOMITING [None]
  - FLUID RETENTION [None]
  - VIRAL INFECTION [None]
  - MINERAL SUPPLEMENTATION [None]
  - VISION BLURRED [None]
  - HYPERSENSITIVITY [None]
